FAERS Safety Report 8120950-2 (Version None)
Quarter: 2012Q1

REPORT INFORMATION
  Report Type: 
  Country: None (occurrence: None)
  Receive Date: 20120208
  Receipt Date: 20120201
  Transmission Date: 20120608
  Serious: Yes (Life-Threatening, Hospitalization, Other)
  Sender: FDA-Public Use
  Company Number: US-BAYER-2011-024151

PATIENT
  Age: 31 Year
  Sex: Female
  Weight: 68.027 kg

DRUGS (14)
  1. DROSPIRENONE AND ETHINYL ESTRADIOL [Suspect]
     Indication: ACNE
     Dosage: UNK
     Route: 048
     Dates: start: 20090101, end: 20090301
  2. ALLEGRA [Concomitant]
  3. DIGOXIN [Concomitant]
  4. ATIVAN [Concomitant]
  5. PERCOCET [Concomitant]
  6. AMBIEN [Concomitant]
  7. METOPROLOL TARTRATE [Concomitant]
  8. VOLTAREN [Concomitant]
  9. PREDNISONE [Concomitant]
  10. MINOCYCLINE HCL [Concomitant]
  11. PAXIL [Concomitant]
     Indication: MOOD ALTERED
     Route: 048
  12. PARAFON [Concomitant]
  13. CHLORZOXAZONE [Concomitant]
  14. VICODIN [Concomitant]

REACTIONS (15)
  - PAIN IN EXTREMITY [None]
  - INJURY [None]
  - BILIARY DYSKINESIA [None]
  - DYSPNOEA [None]
  - PAIN [None]
  - GALLBLADDER DISORDER [None]
  - CHEST PAIN [None]
  - MOBILITY DECREASED [None]
  - OEDEMA [None]
  - OEDEMA PERIPHERAL [None]
  - ARTHRALGIA [None]
  - CHOLECYSTITIS CHRONIC [None]
  - PULMONARY EMBOLISM [None]
  - GASTRIC DISORDER [None]
  - JOINT SWELLING [None]
